FAERS Safety Report 14298646 (Version 2)
Quarter: 2018Q1

REPORT INFORMATION
  Report Type: Spontaneous
  Country: ES (occurrence: ES)
  Receive Date: 20171218
  Receipt Date: 20180104
  Transmission Date: 20180509
  Serious: Yes (Other)
  Sender: FDA-Public Use
  Company Number: ES-TEVA-2017-ES-832859

PATIENT
  Age: 72 Year
  Sex: Female

DRUGS (10)
  1. DOXORUBICIN HYDROCHLORIDE. [Suspect]
     Active Substance: DOXORUBICIN HYDROCHLORIDE
     Indication: NON-HODGKIN^S LYMPHOMA
     Dosage: UNK (8 CYCLES)
     Dates: start: 201506, end: 201512
  2. PREDNISONE. [Concomitant]
     Active Substance: PREDNISONE
     Indication: NON-HODGKIN^S LYMPHOMA
     Dosage: UNK (8 CYCLES)
     Dates: start: 201506, end: 201512
  3. PREDNISONE. [Concomitant]
     Active Substance: PREDNISONE
     Indication: LUNG ADENOCARCINOMA STAGE IV
  4. CYCLOPHOSPHAMIDE. [Concomitant]
     Active Substance: CYCLOPHOSPHAMIDE
     Indication: LUNG ADENOCARCINOMA STAGE IV
  5. VINCRISTINE [Concomitant]
     Active Substance: VINCRISTINE
     Indication: LUNG ADENOCARCINOMA STAGE IV
     Dosage: UNK (8 CYCLES)
     Dates: start: 201506, end: 201512
  6. VINCRISTINE [Concomitant]
     Active Substance: VINCRISTINE
     Indication: NON-HODGKIN^S LYMPHOMA
  7. RITUXIMAB. [Concomitant]
     Active Substance: RITUXIMAB
     Indication: LUNG ADENOCARCINOMA STAGE IV
     Dosage: UNK (8 CYCLES)
     Dates: start: 201506, end: 201512
  8. DOXORUBICIN HYDROCHLORIDE. [Suspect]
     Active Substance: DOXORUBICIN HYDROCHLORIDE
     Indication: LUNG ADENOCARCINOMA STAGE IV
  9. RITUXIMAB. [Concomitant]
     Active Substance: RITUXIMAB
     Indication: NON-HODGKIN^S LYMPHOMA
  10. CYCLOPHOSPHAMIDE. [Concomitant]
     Active Substance: CYCLOPHOSPHAMIDE
     Indication: NON-HODGKIN^S LYMPHOMA
     Dosage: UNK (8 CYCLES)
     Dates: start: 201506, end: 201512

REACTIONS (2)
  - Cardiotoxicity [Unknown]
  - Pulmonary oedema [Unknown]

NARRATIVE: CASE EVENT DATE: 201601
